FAERS Safety Report 8459602-8 (Version None)
Quarter: 2012Q2

REPORT INFORMATION
  Report Type: 
  Country: None (occurrence: None)
  Receive Date: 20120622
  Receipt Date: 20120618
  Transmission Date: 20120825
  Serious: Yes (Hospitalization)
  Sender: FDA-Public Use
  Company Number: US-GLAXOSMITHKLINE-A0962512A

PATIENT
  Age: 75 Year
  Sex: Male

DRUGS (1)
  1. AVANDIA [Suspect]
     Indication: DIABETES MELLITUS
     Dosage: 4MG PER DAY
     Route: 048
     Dates: start: 20060301, end: 20060501

REACTIONS (6)
  - CARDIAC DISORDER [None]
  - MYOCARDIAL INFARCTION [None]
  - CARDIAC ASSISTANCE DEVICE USER [None]
  - CHEST DISCOMFORT [None]
  - CORONARY ARTERIAL STENT INSERTION [None]
  - LOSS OF CONSCIOUSNESS [None]
